FAERS Safety Report 7455144-7 (Version None)
Quarter: 2011Q2

REPORT INFORMATION
  Report Type: 
  Country: None (occurrence: None)
  Receive Date: 20110503
  Receipt Date: 20110427
  Transmission Date: 20111010
  Serious: Yes (Death)
  Sender: FDA-Public Use
  Company Number: US-SANOFI-AVENTIS-2011SA025905

PATIENT
  Sex: Male

DRUGS (1)
  1. JEVTANA KIT [Suspect]
     Route: 041

REACTIONS (1)
  - DEATH [None]
